FAERS Safety Report 9586131 (Version 2)
Quarter: 2013Q4

REPORT INFORMATION
  Report Type: Spontaneous
  Country: GB (occurrence: None)
  Receive Date: 20131001
  Receipt Date: 20131004
  Transmission Date: 20140711
  Serious: Yes (Death, Life-Threatening, Hospitalization)
  Sender: FDA-Public Use
  Company Number: 1563865

PATIENT
  Age: 78 Year
  Sex: Female
  Weight: 51 kg

DRUGS (11)
  1. METHOTREXATE [Suspect]
     Indication: RHEUMATOID ARTHRITIS
     Route: 058
     Dates: start: 20101111, end: 20121018
  2. ETANERCEPT [Suspect]
     Indication: RHEUMATOID ARTHRITIS
     Route: 058
     Dates: start: 20120913, end: 20121018
  3. DIHYDROCODEINE PHOSPHATE) [Concomitant]
  4. CALCIUM CARBONATE W/ COLECALCIFEROL [Concomitant]
  5. ALENDRONIC ACID [Concomitant]
  6. MORPHINE SULPHATE [Concomitant]
  7. NYSTATIN [Concomitant]
  8. PARACETAMOL [Concomitant]
  9. FUROSEMIDE [Concomitant]
  10. METHYLPREDNISOLONE [Concomitant]
  11. PREDNISOLONE [Concomitant]

REACTIONS (4)
  - Pneumonitis [None]
  - Alveolitis [None]
  - Pneumocystis jirovecii pneumonia [None]
  - Influenza like illness [None]
